FAERS Safety Report 10219912 (Version 1)
Quarter: 2014Q2

REPORT INFORMATION
  Report Type: Spontaneous
  Country: FR (occurrence: FR)
  Receive Date: 20140605
  Receipt Date: 20140605
  Transmission Date: 20141212
  Serious: Yes (Hospitalization)
  Sender: FDA-Public Use
  Company Number: FR-PFIZER INC-2014151322

PATIENT
  Age: 33 Year
  Sex: Female
  Weight: 48 kg

DRUGS (7)
  1. XANAX [Suspect]
     Dosage: 0.5 MG, DAILY
     Route: 048
  2. XANAX [Suspect]
     Dosage: 1.5 MG, SINGLE
     Route: 048
     Dates: start: 20140512, end: 20140512
  3. PROZAC [Suspect]
     Dosage: 60 MG, DAILY
     Route: 048
  4. PROZAC [Suspect]
     Dosage: 2.5 BOXES IN ONE SINGLE DOSE
     Route: 048
     Dates: start: 20140512, end: 20140512
  5. PARACETAMOL [Suspect]
     Dosage: 10 G, SINGLE
     Route: 048
     Dates: start: 20140512, end: 20140512
  6. LEXOMIL ROCHE [Suspect]
     Dosage: UNK, DAILY
     Route: 048
  7. LEXOMIL ROCHE [Suspect]
     Dosage: 1 BOX IN ONE SINGLE DOSE
     Route: 048
     Dates: start: 20140512, end: 20140512

REACTIONS (5)
  - Overdose [Unknown]
  - Toxicity to various agents [Unknown]
  - Hepatocellular injury [Unknown]
  - Electrocardiogram QT prolonged [Unknown]
  - Hepatic failure [Unknown]
